FAERS Safety Report 9701760 (Version 5)
Quarter: 2014Q2

REPORT INFORMATION
  Report Type: Report from Study
  Country: IL (occurrence: IL)
  Receive Date: 20131121
  Receipt Date: 20140520
  Transmission Date: 20141212
  Serious: Yes (Death, Other)
  Sender: FDA-Public Use
  Company Number: IL-CELGENEUS-082-21880-13111645

PATIENT
  Age: 80 Year
  Sex: Female

DRUGS (8)
  1. BLINDED REVLIMID [Suspect]
     Indication: DIFFUSE LARGE B-CELL LYMPHOMA
     Dosage: 10 MILLIGRAM
     Route: 048
     Dates: start: 20120124, end: 20131022
  2. BLINDED REVLIMID [Suspect]
     Dosage: 10 MILLIGRAM
     Route: 048
     Dates: start: 20131021, end: 20131118
  3. ASPIRINE [Concomitant]
     Indication: PROPHYLAXIS
     Route: 065
     Dates: start: 200407
  4. GLUBEN [Concomitant]
     Indication: TYPE 2 DIABETES MELLITUS
     Route: 065
     Dates: start: 200004
  5. AMLODIPINE [Concomitant]
     Indication: HYPERTENSION
     Route: 065
     Dates: start: 200407
  6. ENALADEX [Concomitant]
     Indication: HYPERTENSION
     Route: 065
     Dates: start: 2000
  7. METFORMIN [Concomitant]
     Indication: TYPE 2 DIABETES MELLITUS
     Route: 065
     Dates: start: 2000
  8. NORMOLOL [Concomitant]
     Indication: HYPERTENSION
     Route: 065
     Dates: start: 200008

REACTIONS (1)
  - Rectal adenocarcinoma [Fatal]
